FAERS Safety Report 21657688 (Version 1)
Quarter: 2022Q4

REPORT INFORMATION
  Report Type: Spontaneous
  Country: JP (occurrence: JP)
  Receive Date: 20221129
  Receipt Date: 20221129
  Transmission Date: 20230113
  Serious: Yes (Other)
  Sender: FDA-Public Use
  Company Number: JP-BAYER-2022A160272

PATIENT
  Age: 31 Year
  Sex: Female

DRUGS (1)
  1. YAZ [Suspect]
     Active Substance: DROSPIRENONE\ETHINYL ESTRADIOL
     Indication: Dysmenorrhoea
     Dosage: 1 DF, QD
     Route: 048
     Dates: start: 20171101, end: 20220601

REACTIONS (4)
  - Pancreatitis acute [Recovering/Resolving]
  - Blood triglycerides increased [Recovering/Resolving]
  - Blood aldosterone increased [Recovering/Resolving]
  - Weight increased [Not Recovered/Not Resolved]
